FAERS Safety Report 15770419 (Version 2)
Quarter: 2019Q3

REPORT INFORMATION
  Report Type: Spontaneous
  Country: US (occurrence: US)
  Receive Date: 20181228
  Receipt Date: 20190701
  Transmission Date: 20191004
  Serious: No
  Sender: FDA-Public Use
  Company Number: US-MYLANLABS-2018M1090574

PATIENT
  Sex: Female
  Weight: 70 kg

DRUGS (5)
  1. METOPROLOL. [Concomitant]
     Active Substance: METOPROLOL
  2. ROSUVASTATIN. [Concomitant]
     Active Substance: ROSUVASTATIN
     Dosage: UNK
     Dates: start: 201811
  3. LOSARTAN. [Concomitant]
     Active Substance: LOSARTAN
  4. ESTRADIOL TRANSDERMAL SYSTEM [Suspect]
     Active Substance: ESTRADIOL
     Indication: HYSTERECTOMY
     Dosage: 0.05 MILLIGRAM (ONCE-WEEKLY)
     Route: 062
  5. PLAVIX [Concomitant]
     Active Substance: CLOPIDOGREL BISULFATE

REACTIONS (4)
  - Application site rash [Not Recovered/Not Resolved]
  - Product quality issue [Unknown]
  - Application site swelling [Not Recovered/Not Resolved]
  - Application site haemorrhage [Not Recovered/Not Resolved]
